FAERS Safety Report 5511479-6 (Version None)
Quarter: 2007Q4

REPORT INFORMATION
  Report Type: 
  Country: None (occurrence: None)
  Receive Date: 20071109
  Receipt Date: 20071031
  Transmission Date: 20080405
  Serious: Yes (Death)
  Sender: FDA-Public Use
  Company Number: A0670772A

PATIENT
  Age: 61 Year
  Sex: Male
  Weight: 88.2 kg

DRUGS (7)
  1. AVANDIA [Suspect]
     Route: 048
     Dates: start: 20060120
  2. AVANDAMET [Suspect]
     Dosage: 2TAB PER DAY
     Dates: start: 20050902, end: 20060101
  3. METFORMIN HCL [Concomitant]
  4. GLUCOTROL XL [Concomitant]
  5. LIPITOR [Concomitant]
     Route: 048
     Dates: start: 20050912
  6. LISINOPRIL AND HYDROCHLOROTHIAZIDE [Concomitant]
  7. ASPIRIN [Concomitant]

REACTIONS (11)
  - ANXIETY [None]
  - ARTERIOSCLEROSIS CORONARY ARTERY [None]
  - BLOOD GLUCOSE INCREASED [None]
  - BLOOD TRIGLYCERIDES INCREASED [None]
  - CONSTIPATION [None]
  - GLYCOSYLATED HAEMOGLOBIN INCREASED [None]
  - HIGH DENSITY LIPOPROTEIN INCREASED [None]
  - LOW DENSITY LIPOPROTEIN INCREASED [None]
  - SUDDEN DEATH [None]
  - WEIGHT INCREASED [None]
  - WHITE BLOOD CELL COUNT INCREASED [None]
